FAERS Safety Report 24242302 (Version 4)
Quarter: 2024Q4

REPORT INFORMATION
  Report Type: Spontaneous
  Country: CA (occurrence: CA)
  Receive Date: 20240823
  Receipt Date: 20241014
  Transmission Date: 20250115
  Serious: Yes (Other)
  Sender: PFIZER
  Company Number: CA-PFIZER INC-202300334628

PATIENT
  Age: 64 Year
  Sex: Female
  Weight: 103.4 kg

DRUGS (17)
  1. RUXIENCE [Suspect]
     Active Substance: RITUXIMAB-PVVR
     Indication: Immunoglobulin G4 related disease
     Dosage: DAY 1 AND DAY 15
     Route: 042
     Dates: start: 20240103
  2. RUXIENCE [Suspect]
     Active Substance: RITUXIMAB-PVVR
     Indication: Retroperitoneal fibrosis
     Dosage: DAY 1 AND DAY 15 (DAY 15 OF FIRST TREATMENT)
     Route: 042
     Dates: start: 20240116, end: 20240116
  3. ASPIRIN [Concomitant]
     Active Substance: ASPIRIN
     Dosage: UNK
  4. BISOPROLOL [Concomitant]
     Active Substance: BISOPROLOL\BISOPROLOL FUMARATE
     Dosage: UNK
  5. CALCIUM [Concomitant]
     Active Substance: CALCIUM
     Dosage: UNK
  6. CANDESARTAN [Concomitant]
     Active Substance: CANDESARTAN
     Dosage: UNK
  7. COLCHICINE [Concomitant]
     Active Substance: COLCHICINE
     Dosage: UNK
  8. INDAPAMIDE [Concomitant]
     Active Substance: INDAPAMIDE
     Dosage: UNK
  9. LANSOPRAZOLE [Concomitant]
     Active Substance: LANSOPRAZOLE
     Dosage: UNK
  10. LEVOTHYROXINE [Concomitant]
     Active Substance: LEVOTHYROXINE
     Dosage: UNK
  11. PREDNISONE [Concomitant]
     Active Substance: PREDNISONE
     Dosage: 2.5 MG
  12. PREDNISONE [Concomitant]
     Active Substance: PREDNISONE
     Dosage: 5 MG
  13. ROSUVASTATIN [Concomitant]
     Active Substance: ROSUVASTATIN
     Dosage: UNK
  14. SYMBICORT [Concomitant]
     Active Substance: BUDESONIDE\FORMOTEROL FUMARATE DIHYDRATE
     Dosage: UNK
  15. SERTRALINE [Concomitant]
     Active Substance: SERTRALINE HYDROCHLORIDE
     Dosage: UNK
  16. CHOLECALCIFEROL [Concomitant]
     Active Substance: CHOLECALCIFEROL
     Dosage: UNK
  17. CYANOCOBALAMIN [Concomitant]
     Active Substance: CYANOCOBALAMIN
     Dosage: UNK

REACTIONS (3)
  - Cataract [Recovering/Resolving]
  - Drug effective for unapproved indication [Unknown]
  - Off label use [Unknown]

NARRATIVE: CASE EVENT DATE: 20240101
